FAERS Safety Report 17174774 (Version 1)
Quarter: 2019Q4

REPORT INFORMATION
  Report Type: Spontaneous
  Country: US (occurrence: US)
  Receive Date: 20191218
  Receipt Date: 20191218
  Transmission Date: 20200122
  Serious: No
  Sender: FDA-Public Use
  Company Number: None

PATIENT
  Age: 65 Year
  Sex: Female
  Weight: 78.75 kg

DRUGS (2)
  1. EMGALITY [Suspect]
     Active Substance: GALCANEZUMAB-GNLM
     Indication: CLUSTER HEADACHE
     Route: 030
     Dates: start: 20190901, end: 20191212
  2. AIMOVIG [Suspect]
     Active Substance: ERENUMAB-AOOE
     Route: 030
     Dates: start: 20190201, end: 20190531

REACTIONS (6)
  - Joint swelling [None]
  - Abdominal distension [None]
  - Weight increased [None]
  - Peripheral swelling [None]
  - Back pain [None]
  - Neuralgia [None]

NARRATIVE: CASE EVENT DATE: 20190315
